FAERS Safety Report 22086378 (Version 1)
Quarter: 2023Q1

REPORT INFORMATION
  Report Type: Report from Study
  Country: US (occurrence: US)
  Receive Date: 20230312
  Receipt Date: 20230312
  Transmission Date: 20230418
  Serious: Yes (Other)
  Sender: FDA-Public Use
  Company Number: US-ABBVIE-4287424

PATIENT
  Sex: Female

DRUGS (2)
  1. RINVOQ [Suspect]
     Active Substance: UPADACITINIB
     Indication: Rheumatoid arthritis
     Route: 048
     Dates: start: 20220114
  2. ABATACEPT [Concomitant]
     Active Substance: ABATACEPT
     Indication: Rheumatoid arthritis
     Dates: start: 20180112

REACTIONS (1)
  - Arthralgia [Recovering/Resolving]
